FAERS Safety Report 4709639-7 (Version None)
Quarter: 2005Q3

REPORT INFORMATION
  Report Type: 
  Country: None (occurrence: None)
  Receive Date: 20050706
  Receipt Date: 20050706
  Transmission Date: 20060218
  Serious: Yes (Hospitalization)
  Sender: FDA-Public Use
  Company Number: None

PATIENT
  Age: 32 Year
  Sex: Female
  Weight: 68.0396 kg

DRUGS (2)
  1. VALTREX [Suspect]
     Indication: VIRAL LABYRINTHITIS
     Dosage: 500MG   TWICE DAILY  ORAL
     Route: 048
     Dates: start: 20050628, end: 20050703
  2. ALLEGRA-D 12 HOUR [Concomitant]

REACTIONS (6)
  - ANXIETY [None]
  - BLOOD PRESSURE INCREASED [None]
  - DYSPNOEA [None]
  - HEART RATE INCREASED [None]
  - HYPERSENSITIVITY [None]
  - HYPERVENTILATION [None]
